FAERS Safety Report 6771865-3 (Version None)
Quarter: 2010Q2

REPORT INFORMATION
  Report Type: 
  Country: None (occurrence: None)
  Receive Date: 20100616
  Receipt Date: 20100312
  Transmission Date: 20101027
  Serious: No
  Sender: FDA-Public Use
  Company Number: US-ASTRAZENECA-2010SE08418

PATIENT
  Age: 60 Year
  Sex: Female
  Weight: 81.6 kg

DRUGS (9)
  1. ENTOCORT EC [Suspect]
     Indication: COLITIS ULCERATIVE
     Route: 048
     Dates: start: 20080601
  2. OMEPRAZOLE [Concomitant]
  3. LIBRAX [Concomitant]
  4. IMURAN [Concomitant]
  5. PREDNISONE [Concomitant]
  6. HYZAAR [Concomitant]
  7. COLAZAL [Concomitant]
  8. IMODIUM [Concomitant]
  9. POTASSIUM CHLORIDE [Concomitant]

REACTIONS (19)
  - CONTUSION [None]
  - COUGH [None]
  - ECZEMA [None]
  - GLAUCOMA [None]
  - HAEMORRHOIDS [None]
  - HIRSUTISM [None]
  - HYPERCHOLESTEROLAEMIA [None]
  - HYPERTENSION [None]
  - HYPOKALAEMIA [None]
  - MUSCLE SPASMS [None]
  - ORAL CANDIDIASIS [None]
  - PAIN [None]
  - SKIN DISCOLOURATION [None]
  - SKIN PAPILLOMA [None]
  - SUBCUTANEOUS ABSCESS [None]
  - TONGUE DISCOLOURATION [None]
  - URINARY TRACT INFECTION [None]
  - VISION BLURRED [None]
  - WEIGHT DECREASED [None]
